FAERS Safety Report 7329703-6 (Version None)
Quarter: 2011Q1

REPORT INFORMATION
  Report Type: 
  Country: None (occurrence: None)
  Receive Date: 20110303
  Receipt Date: 20110225
  Transmission Date: 20110831
  Serious: Yes (Hospitalization)
  Sender: FDA-Public Use
  Company Number: IT-B.I. PHARMACEUTICALS,INC./RIDGEFIELD-2011-IT-00055IT

PATIENT
  Sex: Female

DRUGS (4)
  1. ZOLPIDEM [Suspect]
     Indication: DRUG ABUSE
     Dosage: 30 POSOLOGIC UNITS
     Route: 048
     Dates: start: 20100923, end: 20100923
  2. KCL-RETARD [Suspect]
     Indication: DRUG ABUSE
     Dosage: 40 POSOLOGIC UNITS
     Route: 048
     Dates: start: 20100923, end: 20100923
  3. MIRTAZAPINE [Suspect]
     Indication: DRUG ABUSE
     Dosage: 15 POSOLOGIC UNITS
     Route: 048
     Dates: start: 20100923, end: 20100923
  4. MICARDIS [Suspect]
     Indication: DRUG ABUSE
     Dosage: 7 POSOLOGIC UNITS
     Route: 048
     Dates: start: 20100923, end: 20100923

REACTIONS (1)
  - COMA [None]
